FAERS Safety Report 25040945 (Version 2)
Quarter: 2025Q1

REPORT INFORMATION
  Report Type: Report from Study
  Country: US (occurrence: US)
  Receive Date: 20250305
  Receipt Date: 20250311
  Transmission Date: 20250409
  Serious: Yes (Other)
  Sender: SANDOZ
  Company Number: US-SANDOZ-SDZ2025US013154

PATIENT
  Sex: Female

DRUGS (1)
  1. GLATOPA [Suspect]
     Active Substance: GLATIRAMER ACETATE
     Indication: Multiple sclerosis
     Dosage: 40 MG, TIW 3 X WEEKLY, SPACED OTHER 48 HOURS APART
     Route: 058
     Dates: start: 20250224

REACTIONS (7)
  - Foot operation [Unknown]
  - Injection site haemorrhage [Unknown]
  - Injection site pain [Recovered/Resolved]
  - Injection site mass [Recovering/Resolving]
  - Injection site pruritus [Unknown]
  - Injection site erythema [Unknown]
  - Wrong technique in product usage process [Unknown]

NARRATIVE: CASE EVENT DATE: 20250101
